FAERS Safety Report 19167963 (Version 4)
Quarter: 2021Q4

REPORT INFORMATION
  Report Type: Spontaneous
  Country: FR (occurrence: FR)
  Receive Date: 20210422
  Receipt Date: 20211021
  Transmission Date: 20220303
  Serious: Yes (Hospitalization, Other)
  Sender: FDA-Public Use
  Company Number: FR-GLAXOSMITHKLINE-FR2021EME085849

PATIENT
  Age: 56 Year
  Sex: Female

DRUGS (1)
  1. BENLYSTA [Suspect]
     Active Substance: BELIMUMAB
     Indication: Systemic lupus erythematosus
     Dosage: 200 MG
     Dates: start: 20190705

REACTIONS (11)
  - Colitis [Unknown]
  - Sjogren^s syndrome [Unknown]
  - Transient global amnesia [Unknown]
  - Injection site pain [Unknown]
  - Injection site discomfort [Unknown]
  - Pain in extremity [Unknown]
  - Fatigue [Unknown]
  - Cyst removal [Unknown]
  - Erythema [Unknown]
  - Pruritus [Unknown]
  - Proteinuria [Unknown]

NARRATIVE: CASE EVENT DATE: 20201001
